FAERS Safety Report 19538354 (Version 1)
Quarter: 2021Q3

REPORT INFORMATION
  Report Type: Spontaneous
  Country: US (occurrence: US)
  Receive Date: 20210714
  Receipt Date: 20210714
  Transmission Date: 20211014
  Serious: Yes (Hospitalization)
  Sender: FDA-Public Use
  Company Number: None

PATIENT
  Age: 61 Year
  Sex: Male

DRUGS (14)
  1. ATORVASTATIN [Concomitant]
     Active Substance: ATORVASTATIN
  2. LOSARTAN. [Concomitant]
     Active Substance: LOSARTAN
  3. SPIRONOLACT [Concomitant]
     Active Substance: SPIRONOLACTONE
  4. ENBREL [Suspect]
     Active Substance: ETANERCEPT
     Indication: RHEUMATOID ARTHRITIS
     Dosage: ?          OTHER FREQUENCY:ONCE A WEEK;?
     Route: 058
     Dates: start: 20171103
  5. CELECOXIB. [Concomitant]
     Active Substance: CELECOXIB
  6. PREDNISONE. [Concomitant]
     Active Substance: PREDNISONE
  7. DEXTROAMPHET SACCHARAT, AMPHET ASPARTATE, DEXTROAMPHET SULFATE AND AMPHET SULFAT [Concomitant]
     Active Substance: AMPHETAMINE ASPARTATE\AMPHETAMINE SULFATE\DEXTROAMPHETAMINE SACCHARATE\DEXTROAMPHETAMINE SULFATE
  8. CARVEDILOL. [Concomitant]
     Active Substance: CARVEDILOL
  9. DOCUSATE [Concomitant]
     Active Substance: DOCUSATE
  10. PANTOPRAZOLE [Concomitant]
     Active Substance: PANTOPRAZOLE
  11. HYDROCO/APAP [Concomitant]
     Active Substance: ACETAMINOPHEN\HYDROCODONE
  12. ASPIRIN. [Concomitant]
     Active Substance: ASPIRIN
  13. HYDROMORPHON [Concomitant]
     Active Substance: HYDROMORPHONE
  14. LEFLUNOMIDE. [Concomitant]
     Active Substance: LEFLUNOMIDE

REACTIONS (1)
  - Knee arthroplasty [None]

NARRATIVE: CASE EVENT DATE: 20210617
